FAERS Safety Report 8943836 (Version 2)
Quarter: 2012Q4

REPORT INFORMATION
  Report Type: 
  Country: CA (occurrence: CA)
  Receive Date: 20121204
  Receipt Date: 20121221
  Transmission Date: 20130627
  Serious: Yes (Other)
  Sender: FDA-Public Use
  Company Number: PHHY2012CA110182

PATIENT
  Sex: Female

DRUGS (2)
  1. SANDOSTATIN LAR [Suspect]
     Indication: VIPOMA
     Dosage: 60 mg, every 2 weeks
     Route: 030
     Dates: start: 20070723
  2. AFINITOR [Suspect]
     Indication: VIPOMA
     Dosage: 10 mg, daily
     Route: 048
     Dates: start: 20110312, end: 20110319

REACTIONS (5)
  - Weight decreased [Unknown]
  - Malaise [Unknown]
  - Vomiting [Not Recovered/Not Resolved]
  - Diarrhoea [Not Recovered/Not Resolved]
  - Nausea [Not Recovered/Not Resolved]
